FAERS Safety Report 24040893 (Version 1)
Quarter: 2024Q3

REPORT INFORMATION
  Report Type: Spontaneous
  Country: US (occurrence: None)
  Receive Date: 20240702
  Receipt Date: 20240702
  Transmission Date: 20241017
  Serious: No
  Sender: ASTRAZENECA
  Company Number: 2024A143720

PATIENT
  Sex: Male

DRUGS (1)
  1. SYMBICORT [Suspect]
     Active Substance: BUDESONIDE\FORMOTEROL FUMARATE DIHYDRATE
     Dosage: 160; UNKNOWN UNKNOWN
     Route: 055

REACTIONS (5)
  - Chronic obstructive pulmonary disease [Unknown]
  - Asthma [Unknown]
  - Drug dose omission by device [Unknown]
  - Device use issue [Unknown]
  - Wrong technique in device usage process [Unknown]
